FAERS Safety Report 8812421 (Version 3)
Quarter: 2012Q4

REPORT INFORMATION
  Report Type: Report from Study
  Country: KR (occurrence: KR)
  Receive Date: 20120927
  Receipt Date: 20121008
  Transmission Date: 20130627
  Serious: Yes (Death, Hospitalization)
  Sender: FDA-Public Use
  Company Number: KR-PFIZER INC-2012234019

PATIENT
  Age: 31 Year
  Sex: Female
  Weight: 47 kg

DRUGS (6)
  1. SIROLIMUS [Suspect]
     Dosage: 3 mg, 1x/day
     Route: 048
     Dates: start: 20120821, end: 20120912
  2. TACROLIMUS [Suspect]
     Dosage: 0.7 mg, 24hr keep
     Route: 042
     Dates: start: 20120821, end: 20120919
  3. HEPARIN SODIUM [Concomitant]
     Indication: PROPHYLAXIS
     Dosage: UNK
     Route: 042
     Dates: start: 20120815, end: 20120926
  4. ANTITHROMBIN III [Concomitant]
     Indication: THROMBOSIS PROPHYLAXIS
     Dosage: UNK
     Route: 042
     Dates: start: 20120910, end: 20120926
  5. CEFEPIME [Concomitant]
     Indication: PYREXIA
     Dosage: UNK
     Route: 042
     Dates: start: 20120830, end: 20120910
  6. SODIUM BICARBONATE [Concomitant]
     Indication: MUCOSAL INFLAMMATION
     Dosage: UNK
     Route: 050
     Dates: start: 20120814, end: 20120926

REACTIONS (2)
  - Venoocclusive disease [Not Recovered/Not Resolved]
  - Multi-organ failure [Fatal]
